FAERS Safety Report 9183909 (Version 1)
Quarter: 2012Q4

REPORT INFORMATION
  Report Type: 
  Country: MX (occurrence: MX)
  Receive Date: 20121031
  Receipt Date: 20121031
  Transmission Date: 20130627
  Serious: Yes (Death, Other)
  Sender: FDA-Public Use
  Company Number: PHHY2012MX097845

PATIENT
  Sex: Female

DRUGS (2)
  1. EXFORGE [Suspect]
     Indication: HYPERTENSION
     Dosage: 1 DF (160/10 mg), daily
     Dates: start: 200510
  2. CELOPREX [Concomitant]
     Indication: HYPERTENSION
     Dosage: 1 DF, daily
     Dates: start: 200706

REACTIONS (6)
  - Emphysema [Fatal]
  - Cough [Fatal]
  - Back pain [Unknown]
  - Fluid retention [Unknown]
  - Oedema peripheral [Unknown]
  - Gait disturbance [Unknown]
